FAERS Safety Report 5581518-5 (Version None)
Quarter: 2008Q1

REPORT INFORMATION
  Report Type: 
  Country: None (occurrence: None)
  Receive Date: 20080104
  Receipt Date: 20071228
  Transmission Date: 20080703
  Serious: Yes (Hospitalization)
  Sender: FDA-Public Use
  Company Number: GB-ROCHE-535540

PATIENT
  Age: 73 Year
  Sex: Female
  Weight: 115 kg

DRUGS (1)
  1. ORLISTAT [Suspect]
     Indication: OBESITY
     Route: 048
     Dates: start: 20070604, end: 20071101

REACTIONS (2)
  - CHILLS [None]
  - PYREXIA [None]
